FAERS Safety Report 5731882-9 (Version None)
Quarter: 2008Q2

REPORT INFORMATION
  Report Type: 
  Country: None (occurrence: None)
  Receive Date: 20080508
  Receipt Date: 20080508
  Transmission Date: 20081010
  Serious: Yes (Death)
  Sender: FDA-Public Use
  Company Number: None

PATIENT
  Sex: Male

DRUGS (1)
  1. HEPARIN [Suspect]
     Indication: DIALYSIS
     Dosage: 5 TIMES  A WEEK 040, 042
     Dates: start: 20071101, end: 20080115

REACTIONS (4)
  - CARDIAC ARREST [None]
  - CONFUSIONAL STATE [None]
  - MENTAL STATUS CHANGES [None]
  - VOMITING [None]
